FAERS Safety Report 24731620 (Version 1)
Quarter: 2024Q4

REPORT INFORMATION
  Report Type: Spontaneous
  Country: US (occurrence: None)
  Receive Date: 20241213
  Receipt Date: 20241213
  Transmission Date: 20250115
  Serious: Yes (Hospitalization)
  Sender: Public
  Company Number: None

PATIENT
  Age: 72 Year
  Sex: Male
  Weight: 93 kg

DRUGS (2)
  1. LISINOPRIL [Suspect]
     Active Substance: LISINOPRIL
     Indication: Hypertension
     Dosage: FREQUENCY : DAILY;?
     Route: 048
  2. LOSARTAN [Suspect]
     Active Substance: LOSARTAN

REACTIONS (9)
  - Hiccups [None]
  - Oropharyngeal pain [None]
  - Swelling face [None]
  - Hyponatraemia [None]
  - Dialysis [None]
  - Swelling [None]
  - Drug hypersensitivity [None]
  - Peripheral swelling [None]
  - Angioedema [None]

NARRATIVE: CASE EVENT DATE: 20240819
